FAERS Safety Report 6400591-5 (Version None)
Quarter: 2009Q4

REPORT INFORMATION
  Report Type: 
  Country: None (occurrence: None)
  Receive Date: 20091014
  Receipt Date: 20091001
  Transmission Date: 20100525
  Serious: Yes (Hospitalization)
  Sender: FDA-Public Use
  Company Number: PHHY2009JP42130

PATIENT
  Age: 52 Year
  Sex: Female

DRUGS (1)
  1. TEGRETOL [Suspect]
     Indication: TRIGEMINAL NEURALGIA
     Dosage: 600 MG, UNK
     Route: 048

REACTIONS (3)
  - DIZZINESS [None]
  - PERIPHERAL NERVE DECOMPRESSION [None]
  - SOMNOLENCE [None]
